FAERS Safety Report 6117675-1 (Version None)
Quarter: 2009Q1

REPORT INFORMATION
  Report Type: 
  Country: None (occurrence: None)
  Receive Date: 20090314
  Receipt Date: 20090125
  Transmission Date: 20090719
  Serious: No
  Sender: FDA-Public Use
  Company Number: US-ABBOTT-09P-163-0500129-00

PATIENT
  Sex: Female
  Weight: 56.75 kg

DRUGS (1)
  1. HUMIRA [Suspect]
     Indication: JUVENILE ARTHRITIS
     Dates: start: 20090122

REACTIONS (6)
  - AGITATION [None]
  - ANGER [None]
  - ENERGY INCREASED [None]
  - ILL-DEFINED DISORDER [None]
  - PAIN [None]
  - PSYCHOMOTOR HYPERACTIVITY [None]
